FAERS Safety Report 7911370-1 (Version None)
Quarter: 2011Q4

REPORT INFORMATION
  Report Type: 
  Country: None (occurrence: None)
  Receive Date: 20111114
  Receipt Date: 20111102
  Transmission Date: 20120403
  Serious: Yes (Hospitalization)
  Sender: FDA-Public Use
  Company Number: JP-UCBSA-044787

PATIENT
  Age: 53 Year
  Sex: Female

DRUGS (12)
  1. ALDIOXA [Concomitant]
     Dosage: ADEQUATE DOSE AS NEEDED
     Dates: start: 20110707
  2. BETAMETHASONE SODIUM PHOSPHATE [Concomitant]
     Dosage: ADEQUATE DOSE AS NEEDED
  3. CERTOLIZUMAB PEGOL [Suspect]
     Indication: RHEUMATOID ARTHRITIS
     Route: 058
     Dates: start: 20100428
  4. TACROLIMUS [Concomitant]
     Dosage: 1.5 MG DAILY
  5. INDAPAMIDE [Concomitant]
  6. KETOPROFEN [Concomitant]
     Dosage: ADEQUATE DOSE AS NEEDED
  7. IMIDAPRIL HYDROCHLORIDE [Concomitant]
  8. AMLODIPINE BESYLATE [Concomitant]
  9. PREDNISOLONE [Concomitant]
     Dosage: 3 MG DAILY
  10. FERROUS CITRATE [Concomitant]
     Dates: start: 20110120
  11. ALPROSTADIL ALFADEX [Concomitant]
     Dosage: ADEQUATE DOSE AS NEEDED
     Dates: start: 20110915
  12. LOXOPROFEN SODIUM HYDRATE [Concomitant]
     Dosage: 180 MG DAILY

REACTIONS (1)
  - LARGE INTESTINE PERFORATION [None]
